FAERS Safety Report 8711102 (Version 2)
Quarter: 2012Q4

REPORT INFORMATION
  Report Type: 
  Country: US (occurrence: US)
  Receive Date: 20120807
  Receipt Date: 20121119
  Transmission Date: 20130627
  Serious: No
  Sender: FDA-Public Use
  Company Number: US-009507513-1208USA001412

PATIENT
  Sex: Female
  Weight: 72.56 kg

DRUGS (6)
  1. CLARITIN REDITABS 12HR [Suspect]
     Indication: VASOMOTOR RHINITIS
     Dosage: UNK, qd
     Route: 048
     Dates: start: 2008
  2. CLARITIN REDITABS 12HR [Suspect]
     Indication: MEDICAL OBSERVATION
     Dosage: 2.5 mg, qd
     Route: 048
     Dates: start: 201207
  3. PRILOSEC [Concomitant]
     Indication: GASTRITIS
     Dosage: UNK, Unknown
  4. PRILOSEC [Concomitant]
     Indication: OESOPHAGEAL ULCER
  5. LEVSIN [Concomitant]
     Indication: IRRITABLE BOWEL SYNDROME
     Dosage: UNK, prn
  6. BENEFIBER [Concomitant]
     Indication: DIVERTICULUM
     Dosage: UNK, Unknown

REACTIONS (3)
  - Diarrhoea [Recovered/Resolved]
  - Somnolence [Unknown]
  - Abdominal pain upper [Recovered/Resolved]
